FAERS Safety Report 4723509-X (Version None)
Quarter: 2005Q3

REPORT INFORMATION
  Report Type: 
  Country: None (occurrence: None)
  Receive Date: 20050725
  Receipt Date: 20050524
  Transmission Date: 20060218
  Serious: Yes (Hospitalization)
  Sender: FDA-Public Use
  Company Number: US-GLAXOSMITHKLINE-A0559906A

PATIENT
  Age: 76 Year
  Sex: Female

DRUGS (2)
  1. DYAZIDE [Suspect]
     Indication: FLUID RETENTION
     Dosage: 37.5 PER DAY
     Route: 048
  2. COSOPT [Concomitant]

REACTIONS (2)
  - RASH [None]
  - SKIN WARM [None]
